FAERS Safety Report 23766535 (Version 1)
Quarter: 2024Q2

REPORT INFORMATION
  Report Type: Spontaneous
  Country: US (occurrence: US)
  Receive Date: 20240422
  Receipt Date: 20240422
  Transmission Date: 20240716
  Serious: Yes (Other)
  Sender: FDA-Public Use
  Company Number: US-HALEON-2168236

PATIENT

DRUGS (1)
  1. ACETAMINOPHEN\ASPIRIN\DIPHENHYDRAMINE CITRATE [Suspect]
     Active Substance: ACETAMINOPHEN\ASPIRIN\DIPHENHYDRAMINE CITRATE
     Indication: Product used for unknown indication

REACTIONS (3)
  - Gastritis erosive [Unknown]
  - Ulcer [Unknown]
  - Extra dose administered [Unknown]
